FAERS Safety Report 8536367-2 (Version None)
Quarter: 2012Q3

REPORT INFORMATION
  Report Type: 
  Country: None (occurrence: None)
  Receive Date: 20120725
  Receipt Date: 20120717
  Transmission Date: 20120928
  Serious: Yes (Hospitalization)
  Sender: FDA-Public Use
  Company Number: FR-PFIZER INC-2012177607

PATIENT
  Age: 87 Year
  Sex: Female

DRUGS (6)
  1. LASIX [Concomitant]
     Dosage: UNK
  2. PRAVASTATIN SODIUM [Concomitant]
     Dosage: UNK
     Dates: start: 20070601, end: 20110801
  3. ASPIRIN [Concomitant]
     Dosage: UNK
  4. CORDARONE [Suspect]
     Indication: ATRIAL FIBRILLATION
     Dosage: 200 MG, WEEKLY
     Route: 048
     Dates: start: 20060101, end: 20120101
  5. RAMIPRIL [Concomitant]
     Dosage: UNK
  6. BISO-PUREN [Concomitant]
     Dosage: UNK
     Dates: start: 20120615

REACTIONS (4)
  - INTERSTITIAL LUNG DISEASE [None]
  - CARDIAC FAILURE [None]
  - BRONCHITIS PNEUMOCOCCAL [None]
  - PNEUMONIA PNEUMOCOCCAL [None]
